FAERS Safety Report 18750967 (Version 1)
Quarter: 2021Q1

REPORT INFORMATION
  Report Type: Spontaneous
  Country: US (occurrence: US)
  Receive Date: 20210118
  Receipt Date: 20210118
  Transmission Date: 20210419
  Serious: Yes (Other)
  Sender: FDA-Public Use
  Company Number: US-LUPIN PHARMACEUTICALS INC.-2021-00240

PATIENT
  Age: 94 Year
  Sex: Female

DRUGS (4)
  1. QUETIAPINE FUMARATE. [Suspect]
     Active Substance: QUETIAPINE FUMARATE
     Dosage: 50 MILLIGRAM, QD (NIGHTLY)
     Route: 065
  2. QUETIAPINE FUMARATE. [Suspect]
     Active Substance: QUETIAPINE FUMARATE
     Dosage: 25 MILLIGRAM, QD (PRN)
     Route: 065
  3. QUETIAPINE FUMARATE. [Suspect]
     Active Substance: QUETIAPINE FUMARATE
     Indication: AGITATION
     Dosage: 6.25 MILLIGRAM, QD (PRN)
     Route: 065
  4. QUETIAPINE FUMARATE. [Suspect]
     Active Substance: QUETIAPINE FUMARATE
     Indication: CHARLES BONNET SYNDROME
     Dosage: 12.5 MILLIGRAM, QD (NIGHTLY)
     Route: 065

REACTIONS (5)
  - Hip fracture [Unknown]
  - Somnolence [Unknown]
  - Balance disorder [Unknown]
  - Fall [Unknown]
  - Product prescribing issue [Unknown]
